FAERS Safety Report 8784850 (Version 1)
Quarter: 2012Q4

REPORT INFORMATION
  Report Type: Spontaneous
  Country: FR (occurrence: None)
  Receive Date: 20120831
  Receipt Date: 20120831
  Transmission Date: 20130627
  Serious: Yes (Life-Threatening, Hospitalization)
  Sender: FDA-Public Use
  Company Number: 2012CP000102

PATIENT
  Age: 34 Year
  Sex: Male

DRUGS (16)
  1. PERFALGAN [Suspect]
     Dosage: 1 dosage form; iv
     Route: 042
     Dates: start: 20120711
  2. ACUPAN [Suspect]
     Dosage: 120 mg; 1 day; iv
     Route: 042
     Dates: start: 20120716, end: 20120727
  3. AMIKACIN [Suspect]
     Dosage: 900 mg; 1 day; iv
     Route: 042
     Dates: start: 20120711
  4. ANSATIPINE [Suspect]
     Route: 048
     Dates: start: 20120711
  5. BACTRIM [Suspect]
     Dosage: 800 mg;1 day; po
     Route: 048
     Dates: start: 20120713
  6. CERNEVIT [Suspect]
     Route: 042
     Dates: start: 20120710, end: 20120802
  7. DIFFU K [Suspect]
     Route: 048
     Dates: start: 20120710
  8. ISENTRESS [Suspect]
     Route: 048
     Dates: start: 201205
  9. KALETRA [Suspect]
     Dosage: 1 dosage form; po
     Route: 048
     Dates: start: 201203
  10. LEDERFOLIN [Suspect]
     Route: 048
     Dates: start: 20120710
  11. LYSANXIA [Suspect]
     Dosage: 1 dosage form; 1 day
     Dates: start: 20120710
  12. MYAMBUTOL [Suspect]
     Dosage: 1 dosage form; 1 day; po
     Route: 048
     Dates: start: 20120711
  13. OLANZAPINE [Suspect]
     Route: 048
     Dates: start: 2012
  14. ZECLAR [Suspect]
     Dosage: 500 mg; 1 day; iv
     Route: 042
     Dates: start: 20120711
  15. TRUVADA [Suspect]
     Route: 048
     Dates: start: 201203
  16. UNSPECIFIED INGREDIENTS [Suspect]
     Route: 051
     Dates: start: 20120710

REACTIONS (8)
  - Convulsion [None]
  - Coma [None]
  - Renal failure [None]
  - Somnolence [None]
  - Hepatosplenomegaly [None]
  - Spleen disorder [None]
  - Ischaemia [None]
  - Cerebral atrophy [None]
